FAERS Safety Report 6089601-5 (Version None)
Quarter: 2009Q1

REPORT INFORMATION
  Report Type: 
  Country: None (occurrence: None)
  Receive Date: 20090224
  Receipt Date: 20090213
  Transmission Date: 20090719
  Serious: Yes (Hospitalization, Other)
  Sender: FDA-Public Use
  Company Number: PHHY2009JP03283

PATIENT
  Sex: Female
  Weight: 59 kg

DRUGS (2)
  1. VOLTAREN [Suspect]
     Indication: ARTHRALGIA
     Dosage: 50 MG/DAY
     Route: 054
     Dates: end: 20090119
  2. TAMIFLU [Suspect]
     Indication: INFLUENZA
     Dosage: 150 MG/DAY (75 MG TWICE DAILY)
     Route: 048
     Dates: start: 20090116, end: 20090119

REACTIONS (4)
  - DISORIENTATION [None]
  - HALLUCINATION, VISUAL [None]
  - INFLUENZA [None]
  - PYREXIA [None]
